FAERS Safety Report 18405686 (Version 2)
Quarter: 2020Q4

REPORT INFORMATION
  Report Type: Spontaneous
  Country: GB (occurrence: GB)
  Receive Date: 20201020
  Receipt Date: 20201109
  Transmission Date: 20210114
  Serious: Yes (Hospitalization, Other)
  Sender: FDA-Public Use
  Company Number: NVSC2020GB280341

PATIENT

DRUGS (3)
  1. PEG/L-ASPARAGINASE [Suspect]
     Active Substance: PEGASPARGASE
     Indication: ANGIOCENTRIC LYMPHOMA
     Dosage: 2500 UNITS/M2, CYCLIC (ON DAY 1 OF 15 DAY CYCLE AND THEN 2 MORE CYCLES AFTER RADIATION)
     Route: 065
  2. OXALIPLATIN. [Suspect]
     Active Substance: OXALIPLATIN
     Indication: ANGIOCENTRIC LYMPHOMA
     Dosage: 85 MG/M2, CYCLIC (ON DAY 1 OF 15 DAY CYCLE AND THEN 2 MORE CYCLES AFTER RADIATION)
     Route: 065
  3. GEMCITABINE. [Suspect]
     Active Substance: GEMCITABINE
     Indication: ANGIOCENTRIC LYMPHOMA
     Dosage: 1250 MG/M2, CYCLIC (ON DAY 1 OF 15 DAY CYCLE AND THEN 2 MORE CYCLES AFTER RADIATION)
     Route: 065

REACTIONS (3)
  - Product use in unapproved indication [Unknown]
  - Nausea [Unknown]
  - Vomiting [Unknown]
